FAERS Safety Report 17043027 (Version 1)
Quarter: 2019Q4

REPORT INFORMATION
  Report Type: Spontaneous
  Country: US (occurrence: US)
  Receive Date: 20191115
  Receipt Date: 20191115
  Transmission Date: 20200122
  Serious: Yes (Disabling)
  Sender: FDA-Public Use
  Company Number: None

PATIENT
  Age: 55 Year
  Sex: Female
  Weight: 87.75 kg

DRUGS (4)
  1. ZYRTEC [Concomitant]
     Active Substance: CETIRIZINE HYDROCHLORIDE
  2. VITAMIN D [Concomitant]
     Active Substance: VITAMIN D NOS
  3. LEVOFLOXACIN. [Suspect]
     Active Substance: LEVOFLOXACIN
     Indication: SINUSITIS
     Dosage: ?          QUANTITY:1 TABLET(S);?
     Route: 048
     Dates: start: 20191001, end: 20191005
  4. IBUPROFEN. [Concomitant]
     Active Substance: IBUPROFEN

REACTIONS (4)
  - Mobility decreased [None]
  - Pain [None]
  - Tendonitis [None]
  - Gait disturbance [None]

NARRATIVE: CASE EVENT DATE: 20191003
